FAERS Safety Report 21778878 (Version 1)
Quarter: 2022Q4

REPORT INFORMATION
  Report Type: Report from Study
  Country: GB (occurrence: GB)
  Receive Date: 20221226
  Receipt Date: 20221226
  Transmission Date: 20230113
  Serious: Yes (Other)
  Sender: FDA-Public Use
  Company Number: GB-002147023-PHHY2019GB193945

PATIENT
  Age: 58 Year
  Sex: Male

DRUGS (3)
  1. COSENTYX [Suspect]
     Active Substance: SECUKINUMAB
     Indication: Ankylosing spondylitis
     Dosage: 150 MG
     Route: 065
     Dates: start: 20180314, end: 20180410
  2. COSENTYX [Suspect]
     Active Substance: SECUKINUMAB
     Dosage: 150 MG
     Route: 065
     Dates: start: 20180411, end: 20201020
  3. COSENTYX [Suspect]
     Active Substance: SECUKINUMAB
     Dosage: 150 MG
     Route: 065
     Dates: start: 20201203

REACTIONS (17)
  - Erectile dysfunction [Not Recovered/Not Resolved]
  - Epididymitis [Not Recovered/Not Resolved]
  - Testicular cyst [Recovered/Resolved]
  - Hypertension [Not Recovered/Not Resolved]
  - Dyspnoea [Not Recovered/Not Resolved]
  - Hyperhidrosis [Not Recovered/Not Resolved]
  - COVID-19 [Recovered/Resolved]
  - Back pain [Not Recovered/Not Resolved]
  - Folate deficiency [Recovered/Resolved]
  - Eye pain [Not Recovered/Not Resolved]
  - Migraine [Not Recovered/Not Resolved]
  - Testicular cyst [Not Recovered/Not Resolved]
  - Groin pain [Not Recovered/Not Resolved]
  - Herpes zoster [Recovered/Resolved]
  - Abdominal mass [Recovering/Resolving]
  - Abdominal pain upper [Not Recovered/Not Resolved]
  - Pain in extremity [Not Recovered/Not Resolved]

NARRATIVE: CASE EVENT DATE: 20181101
